FAERS Safety Report 7721454-9 (Version None)
Quarter: 2011Q3

REPORT INFORMATION
  Report Type: 
  Country: None (occurrence: None)
  Receive Date: 20110831
  Receipt Date: 20110823
  Transmission Date: 20111222
  Serious: Yes (Hospitalization)
  Sender: FDA-Public Use
  Company Number: JP-B.I. PHARMACEUTICALS,INC./RIDGEFIELD-2011-BP-20684NB

PATIENT
  Age: 70 Year
  Sex: Female

DRUGS (12)
  1. LASIX [Concomitant]
     Dosage: 10 MG
     Route: 065
  2. BASEN OD [Concomitant]
     Dosage: 3 DF
     Route: 065
  3. MUCOSTA [Concomitant]
     Dosage: 3DF
     Route: 065
  4. PRONON [Concomitant]
     Dosage: 300 MG
     Route: 065
  5. ALOSENN [Concomitant]
     Dosage: 1 G
     Route: 065
  6. PRADAXA [Suspect]
     Indication: ATRIAL FIBRILLATION
     Dosage: 220 MG
     Route: 065
     Dates: end: 20110810
  7. ASPENON [Concomitant]
     Dosage: 40 MG
     Route: 065
  8. VERAPAMIL HCL [Concomitant]
     Dosage: 120 MG
     Route: 065
  9. LANIRAPID [Concomitant]
     Dosage: 0.05 MG
     Route: 065
  10. ROHYPNOL [Concomitant]
     Dosage: 3DF
     Route: 065
  11. OLMESARTAN MEDOXOMIL [Concomitant]
     Dosage: 20 MG
     Route: 065
  12. OMEPRAZOLE [Concomitant]
     Dosage: 10 MG
     Route: 065

REACTIONS (4)
  - DECREASED APPETITE [None]
  - OESOPHAGEAL HAEMORRHAGE [None]
  - OESOPHAGEAL ULCER [None]
  - ABDOMINAL PAIN UPPER [None]
